FAERS Safety Report 6207401-X (Version None)
Quarter: 2009Q2

REPORT INFORMATION
  Report Type: 
  Country: None (occurrence: None)
  Receive Date: 20090528
  Receipt Date: 20090517
  Transmission Date: 20091009
  Serious: Yes (Hospitalization, Other)
  Sender: FDA-Public Use
  Company Number: SE-PFIZER INC-2009214264

PATIENT

DRUGS (1)
  1. ZYVOXID [Suspect]
     Dosage: UNK
     Route: 065
     Dates: start: 20090101, end: 20090504

REACTIONS (7)
  - ANAEMIA [None]
  - FEELING COLD [None]
  - HYPOAESTHESIA [None]
  - HYPOKINESIA [None]
  - PAIN IN EXTREMITY [None]
  - SKIN BURNING SENSATION [None]
  - VISION BLURRED [None]
